FAERS Safety Report 23159235 (Version 1)
Quarter: 2023Q4

REPORT INFORMATION
  Report Type: Spontaneous
  Country: US (occurrence: US)
  Receive Date: 20231108
  Receipt Date: 20231108
  Transmission Date: 20240110
  Serious: Yes (Hospitalization)
  Sender: FDA-Public Use
  Company Number: US-RIGEL Pharmaceuticals, INC-2023FOS001169

PATIENT
  Sex: Female

DRUGS (2)
  1. TAVALISSE [Suspect]
     Active Substance: FOSTAMATINIB
     Indication: Immune thrombocytopenia
     Dosage: 150 MG IN THE MORNING, 100 MG IN THE EVENING
     Route: 048
  2. TAVALISSE [Suspect]
     Active Substance: FOSTAMATINIB
     Indication: Lymphadenopathy
     Dosage: 150 MG, BID
     Route: 048

REACTIONS (3)
  - Platelet count decreased [Unknown]
  - Liver function test increased [Unknown]
  - Product prescribing issue [Unknown]
